FAERS Safety Report 8740158 (Version 2)
Quarter: 2013Q4

REPORT INFORMATION
  Report Type: Spontaneous
  Country: US (occurrence: US)
  Receive Date: 20120823
  Receipt Date: 20131101
  Transmission Date: 20140711
  Serious: No
  Sender: FDA-Public Use
  Company Number: US-009507513-1208USA001633

PATIENT
  Age: 74 Year
  Sex: Female

DRUGS (5)
  1. JANUMET XR [Suspect]
     Indication: DIABETES MELLITUS
     Route: 048
  2. ZETIA [Suspect]
  3. TOPROL XL TABLETS [Concomitant]
  4. SPIRONOLACTONE [Concomitant]
  5. PEPCID [Concomitant]

REACTIONS (2)
  - Blood glucose fluctuation [Not Recovered/Not Resolved]
  - Dizziness [Not Recovered/Not Resolved]
